FAERS Safety Report 4718130-3 (Version None)
Quarter: 2005Q3

REPORT INFORMATION
  Report Type: 
  Country: None (occurrence: None)
  Receive Date: 20050718
  Receipt Date: 20050223
  Transmission Date: 20060218
  Serious: Yes (Hospitalization)
  Sender: FDA-Public Use
  Company Number: 2005000437

PATIENT
  Age: 69 Year
  Sex: Male

DRUGS (1)
  1. TARCEVA [Suspect]
     Indication: NON-SMALL CELL LUNG CANCER STAGE IV
     Dosage: 150 MG (QD), ORAL
     Route: 048
     Dates: start: 20050212, end: 20050218

REACTIONS (3)
  - DEHYDRATION [None]
  - DIARRHOEA [None]
  - STOMATITIS [None]
